FAERS Safety Report 8437791-9 (Version None)
Quarter: 2012Q2

REPORT INFORMATION
  Report Type: 
  Country: None (occurrence: None)
  Receive Date: 20120614
  Receipt Date: 20120510
  Transmission Date: 20120825
  Serious: No
  Sender: FDA-Public Use
  Company Number: US-AMGEN-USASP2012025694

PATIENT
  Age: 41 Year
  Sex: Female
  Weight: 110 kg

DRUGS (2)
  1. HERCEPTIN [Concomitant]
     Indication: BREAST CANCER
     Dosage: 436 MG, Q2WK
     Dates: start: 20100129
  2. XGEVA [Suspect]
     Indication: BREAST CANCER
     Dosage: 120 MG, Q4WK
     Dates: start: 20120330

REACTIONS (3)
  - HYPOAESTHESIA [None]
  - NERVE COMPRESSION [None]
  - PARAESTHESIA [None]
